FAERS Safety Report 8430312-6 (Version None)
Quarter: 2012Q2

REPORT INFORMATION
  Report Type: 
  Country: None (occurrence: None)
  Receive Date: 20120612
  Receipt Date: 20120604
  Transmission Date: 20120825
  Serious: Yes (Other)
  Sender: FDA-Public Use
  Company Number: AT-BRISTOL-MYERS SQUIBB COMPANY-16622524

PATIENT
  Age: 53 Year
  Sex: Female

DRUGS (1)
  1. YERVOY [Suspect]
     Indication: METASTATIC MALIGNANT MELANOMA
     Dosage: 2ND DOSE: 28MAR2012 3RD DOSE: 16APR2012. NO OF DOSE:3
     Route: 042
     Dates: start: 20120306

REACTIONS (1)
  - SUBILEUS [None]
